FAERS Safety Report 6696008-6 (Version None)
Quarter: 2010Q2

REPORT INFORMATION
  Report Type: 
  Country: None (occurrence: None)
  Receive Date: 20100423
  Receipt Date: 20100423
  Transmission Date: 20101027
  Serious: Yes (Hospitalization)
  Sender: FDA-Public Use
  Company Number: None

PATIENT
  Sex: Male
  Weight: 72.5755 kg

DRUGS (2)
  1. RANIBIZUMAB (GENENTECH) [Suspect]
     Indication: DIABETIC RETINOPATHY
     Dosage: 0.5MG INTRAVITREAL INJ.
  2. RANIBIZUMAB (GENENTECH) [Suspect]
     Indication: IRIS NEOVASCULARISATION
     Dosage: 0.5MG INTRAVITREAL INJ.

REACTIONS (1)
  - HOSPITALISATION [None]
